FAERS Safety Report 4694840-1 (Version None)
Quarter: 2005Q2

REPORT INFORMATION
  Report Type: 
  Country: None (occurrence: None)
  Receive Date: 20050620
  Receipt Date: 20050503
  Transmission Date: 20051028
  Serious: No
  Sender: FDA-Public Use
  Company Number: 2005SE02664

PATIENT
  Age: 59 Year
  Sex: Female

DRUGS (5)
  1. SEROQUEL [Suspect]
     Indication: SCHIZOPHRENIA
     Route: 048
     Dates: start: 20040101, end: 20050201
  2. SEROQUEL [Suspect]
     Dosage: 400 MG + 500 MG DAILY
     Route: 048
     Dates: start: 20050201, end: 20050101
  3. SEROQUEL [Suspect]
     Dosage: 200MG + 300MG
     Route: 048
     Dates: start: 20050101
  4. RISPERDAL [Concomitant]
     Route: 048
  5. ORSANIL RET [Concomitant]
     Dosage: 50 MG + 200 MG DAILY
     Dates: end: 20050501

REACTIONS (1)
  - LEUKOPENIA [None]
